FAERS Safety Report 5678309-3 (Version None)
Quarter: 2008Q1

REPORT INFORMATION
  Report Type: 
  Country: None (occurrence: None)
  Receive Date: 20080320
  Receipt Date: 20080312
  Transmission Date: 20080703
  Serious: Yes (Other)
  Sender: FDA-Public Use
  Company Number: 2008006362

PATIENT
  Sex: Female

DRUGS (3)
  1. NICORETTE [Suspect]
     Dosage: 15 MG, TRANSDERMAL
     Route: 062
  2. ANTIHYPERTENSIVES (ANTIHYPERTENSIVES) [Concomitant]
  3. SALBUTAMOL (SALBUTAMOL) [Concomitant]

REACTIONS (1)
  - DYSPNOEA [None]
